FAERS Safety Report 23159176 (Version 2)
Quarter: 2023Q4

REPORT INFORMATION
  Report Type: Spontaneous
  Country: US (occurrence: US)
  Receive Date: 20231108
  Receipt Date: 20231218
  Transmission Date: 20240110
  Serious: No
  Sender: FDA-Public Use
  Company Number: US-BAYER-2023A154592

PATIENT
  Age: 19 Year
  Sex: Male

DRUGS (1)
  1. KOVALTRY [Suspect]
     Active Substance: ANTIHEMOPHILIC FACTOR, HUMAN RECOMBINANT
     Indication: Product use in unapproved indication
     Dosage: INFUSE 1500 UNITS (+/-10%) 3 (THREE) TIMES

REACTIONS (1)
  - Adverse event [None]

NARRATIVE: CASE EVENT DATE: 20230902
